FAERS Safety Report 9219445 (Version 1)
Quarter: 2013Q2

REPORT INFORMATION
  Report Type: Spontaneous
  Country: US (occurrence: None)
  Receive Date: 20130408
  Receipt Date: 20130408
  Transmission Date: 20140414
  Serious: No
  Sender: FDA-Public Use
  Company Number: None

PATIENT
  Age: 27 Year
  Sex: Male
  Weight: 58.97 kg

DRUGS (1)
  1. EXJADE [Suspect]
     Route: 048

REACTIONS (3)
  - Headache [None]
  - Diarrhoea [None]
  - Abdominal discomfort [None]
